FAERS Safety Report 4319773-1 (Version None)
Quarter: 2004Q1

REPORT INFORMATION
  Report Type: 
  Country: None (occurrence: None)
  Receive Date: 20040319
  Receipt Date: 20040311
  Transmission Date: 20041129
  Serious: Yes (Hospitalization)
  Sender: FDA-Public Use
  Company Number: FR-GLAXOSMITHKLINE-B0326287A

PATIENT
  Age: 40 Year
  Sex: Female

DRUGS (1)
  1. AMOXICILLIN [Suspect]
     Indication: ACUTE TONSILLITIS
     Route: 048
     Dates: start: 19950903, end: 19950907

REACTIONS (3)
  - ANGIONEUROTIC OEDEMA [None]
  - RASH ERYTHEMATOUS [None]
  - RASH PAPULAR [None]
